FAERS Safety Report 4747525-7 (Version None)
Quarter: 2005Q3

REPORT INFORMATION
  Report Type: 
  Country: None (occurrence: None)
  Receive Date: 20050817
  Receipt Date: 20050817
  Transmission Date: 20060218
  Serious: Yes (Other)
  Sender: FDA-Public Use
  Company Number: None

PATIENT
  Sex: Female
  Weight: 94.8 kg

DRUGS (2)
  1. CETUXIMAB 250MG/M2 BMS [Suspect]
     Indication: RECTAL CANCER
     Dosage: 520MG QWEEKX9WKS INTRAVENOU
     Route: 042
     Dates: start: 20050711, end: 20050815
  2. CAPECTABINE 500 MG [Suspect]
     Indication: RECTAL CANCER
     Dosage: 1500MG BID M-F WITH XRT ORAL
     Route: 048
     Dates: start: 20050711, end: 20050815

REACTIONS (1)
  - PAIN [None]
